FAERS Safety Report 4912883-7 (Version None)
Quarter: 2006Q1

REPORT INFORMATION
  Report Type: 
  Country: None (occurrence: None)
  Receive Date: 20060215
  Receipt Date: 20060117
  Transmission Date: 20060701
  Serious: Yes (Hospitalization)
  Sender: FDA-Public Use
  Company Number: US-BRISTOL-MYERS SQUIBB COMPANY-13250048

PATIENT
  Age: 65 Year
  Sex: Female

DRUGS (2)
  1. LODOSYN [Suspect]
     Indication: PARKINSON'S DISEASE
     Route: 048
     Dates: start: 20060106, end: 20060106
  2. CARBIDOPA + LEVODOPA CR TABS 25/100MG [Concomitant]
     Route: 048

REACTIONS (3)
  - DEHYDRATION [None]
  - DIARRHOEA [None]
  - VOMITING [None]
